FAERS Safety Report 6253758-3 (Version None)
Quarter: 2009Q2

REPORT INFORMATION
  Report Type: 
  Country: None (occurrence: None)
  Receive Date: 20090630
  Receipt Date: 20090623
  Transmission Date: 20091009
  Serious: Yes (Hospitalization)
  Sender: FDA-Public Use
  Company Number: THQ2009A03159

PATIENT
  Age: 56 Year
  Sex: Male

DRUGS (7)
  1. LANSOPRAZOLE [Suspect]
     Indication: PROPHYLAXIS
     Dosage: 16 MG (1 D), PER ORAL
     Route: 048
  2. IDARUBICIN HCL [Suspect]
     Indication: ACUTE PROMYELOCYTIC LEUKAEMIA
     Dosage: 22.8 MG (22.8 MG, 1 IIN 2 D); INTRAVENOUS
     Route: 042
     Dates: start: 20090324, end: 20090328
  3. NOVARTEX (METHOTREXATE) [Suspect]
     Indication: PSORIASIS
     Dosage: 15 MG, PER ORAL
     Route: 048
     Dates: end: 20090122
  4. TAZOCILLINE (PIPERACILLIN SODIUM, TAZOBACTAM SODIUM) [Suspect]
     Indication: PROPHYLAXIS
     Dosage: 16 GM, (1 D), INTRAVENOUS
     Route: 042
     Dates: start: 20090407, end: 20090428
  5. VESANOID [Concomitant]
  6. ASPEGIC (ACETYLSALICYLATE LYSINE) [Concomitant]
  7. ATORVASTATIN CALCIUM [Concomitant]

REACTIONS (9)
  - ACUTE PROMYELOCYTIC LEUKAEMIA [None]
  - BONE MARROW FAILURE [None]
  - CONFUSIONAL STATE [None]
  - DERMATITIS EXFOLIATIVE [None]
  - FEBRILE BONE MARROW APLASIA [None]
  - HYPONATRAEMIA [None]
  - MUCOSAL INFLAMMATION [None]
  - PRURITUS [None]
  - PSORIASIS [None]
